FAERS Safety Report 22799377 (Version 5)
Quarter: 2023Q4

REPORT INFORMATION
  Report Type: Spontaneous
  Country: US (occurrence: US)
  Receive Date: 20230808
  Receipt Date: 20231121
  Transmission Date: 20240110
  Serious: No
  Sender: FDA-Public Use
  Company Number: US-PFIZER INC-PV202300135026

PATIENT
  Age: 60 Year
  Sex: Female

DRUGS (3)
  1. IBRANCE [Suspect]
     Active Substance: PALBOCICLIB
     Dosage: 125 MG
  2. FULVESTRANT [Suspect]
     Active Substance: FULVESTRANT
     Dosage: UNK
  3. ZOMETA [Suspect]
     Active Substance: ZOLEDRONIC ACID

REACTIONS (9)
  - Hot flush [Unknown]
  - Stress [Unknown]
  - Fatigue [Unknown]
  - White blood cell count decreased [Unknown]
  - Ocular hyperaemia [Unknown]
  - Mite allergy [Unknown]
  - Malaise [Unknown]
  - Vein disorder [Unknown]
  - Hepatic enzyme increased [Recovered/Resolved]
